FAERS Safety Report 21979746 (Version 1)
Quarter: 2023Q1

REPORT INFORMATION
  Report Type: Spontaneous
  Country: US (occurrence: None)
  Receive Date: 20230210
  Receipt Date: 20230210
  Transmission Date: 20230417
  Serious: No
  Sender: FDA-Public Use
  Company Number: None

PATIENT
  Age: 66 Year
  Sex: Male
  Weight: 83.25 kg

DRUGS (7)
  1. ARTIFICIAL TEARS LUBRICANT EYE DROPS (CARBOXYMETHYLCELLULOSE SODIUM) [Suspect]
     Active Substance: CARBOXYMETHYLCELLULOSE SODIUM
     Indication: Dry eye
     Dosage: OTHER QUANTITY : 2 DROP(S);?FREQUENCY : TWICE A DAY;?
     Route: 047
     Dates: start: 20221228, end: 20230209
  2. ARTIFICIAL TEARS LUBRICANT EYE DROPS (CARBOXYMETHYLCELLULOSE SODIUM) [Suspect]
     Active Substance: CARBOXYMETHYLCELLULOSE SODIUM
     Indication: Eye irritation
  3. atorvistatin [Concomitant]
  4. FISH OIL [Concomitant]
     Active Substance: FISH OIL
  5. VITAMIN B [Concomitant]
     Active Substance: VITAMIN B
  6. HERBALS\TURMERIC [Concomitant]
     Active Substance: HERBALS\TURMERIC
  7. VITAMIN D [Concomitant]
     Active Substance: VITAMIN D NOS

REACTIONS (3)
  - Vision blurred [None]
  - Recalled product administered [None]
  - Headache [None]

NARRATIVE: CASE EVENT DATE: 20230101
